FAERS Safety Report 8055907-3 (Version None)
Quarter: 2012Q1

REPORT INFORMATION
  Report Type: 
  Country: None (occurrence: None)
  Receive Date: 20120119
  Receipt Date: 20120117
  Transmission Date: 20120608
  Serious: Yes (Hospitalization, Other)
  Sender: FDA-Public Use
  Company Number: AU-ROCHE-1003496

PATIENT
  Sex: Male

DRUGS (5)
  1. ATACAND HCT [Concomitant]
  2. ARAVA [Concomitant]
     Indication: RHEUMATOID ARTHRITIS
  3. METHOTREXATE [Concomitant]
  4. ACTEMRA [Suspect]
     Indication: RHEUMATOID ARTHRITIS
     Route: 065
     Dates: start: 20110406
  5. SUMATRIPTAN SUCCINATE [Concomitant]

REACTIONS (2)
  - JOINT EFFUSION [None]
  - ARTHROSCOPY [None]
